FAERS Safety Report 5131785-7 (Version None)
Quarter: 2006Q4

REPORT INFORMATION
  Report Type: 
  Country: None (occurrence: None)
  Receive Date: 20061016
  Receipt Date: 20061003
  Transmission Date: 20070319
  Serious: Yes (Hospitalization)
  Sender: FDA-Public Use
  Company Number: 2006119480

PATIENT
  Sex: Male

DRUGS (1)
  1. ZIPRASIDONE (CAPS) (ZIPRSIDONE) [Suspect]
     Dosage: 160 MG (1 IN 1 D), ORAL
     Route: 048

REACTIONS (2)
  - ARRHYTHMIA [None]
  - ELECTROCARDIOGRAM QT PROLONGED [None]
